FAERS Safety Report 21906963 (Version 1)
Quarter: 2023Q1

REPORT INFORMATION
  Report Type: Spontaneous
  Country: ES (occurrence: ES)
  Receive Date: 20230125
  Receipt Date: 20230125
  Transmission Date: 20230417
  Serious: Yes (Life-Threatening, Hospitalization)
  Sender: FDA-Public Use
  Company Number: None

PATIENT
  Age: 67 Year
  Sex: Male

DRUGS (7)
  1. RITUXIMAB [Suspect]
     Active Substance: RITUXIMAB
     Indication: Richter^s syndrome
     Dosage: RITUXIMAB 375 MG/M2 (673 MG) IV EL 04/01/2023
     Route: 041
     Dates: start: 20230104, end: 20230104
  2. VENETOCLAX [Suspect]
     Active Substance: VENETOCLAX
     Indication: Richter^s syndrome
     Route: 065
     Dates: start: 20230106, end: 20230114
  3. VENETOCLAX [Suspect]
     Active Substance: VENETOCLAX
     Dosage: ONCE A DAY
     Route: 065
     Dates: start: 20230104, end: 20230105
  4. CYCLOPHOSPHAMIDE [Suspect]
     Active Substance: CYCLOPHOSPHAMIDE
     Indication: Richter^s syndrome
     Dosage: CYCLOPHOSPHAMIDE 480 MG/M2 (861 MG) IV AS A 1-HOUR INFUSION ON 01/08/2023
     Route: 042
     Dates: start: 20230108, end: 20230108
  5. DOXORUBICIN HYDROCHLORIDE [Suspect]
     Active Substance: DOXORUBICIN HYDROCHLORIDE
     Indication: Richter^s syndrome
     Dosage: DOXORUBICIN 18 MG, ETOPOSIDE 90 MG, VCR 0.72 MG) IV AS A 24-H INFUSION ON JANUARY 4, 5, 6 AND 7, 202
     Route: 042
     Dates: start: 20230104, end: 20230107
  6. ETOPOSIDE [Suspect]
     Active Substance: ETOPOSIDE
     Indication: Richter^s syndrome
     Dosage: DOXORUBICIN 18 MG, ETOPOSIDE 90 MG, VCR 0.72 MG) IV AS A 24-H INFUSION ON JANUARY 4, 5, 6 AND 7, 202
     Route: 042
     Dates: start: 20230104, end: 20230107
  7. VINCRISTINE [Suspect]
     Active Substance: VINCRISTINE
     Indication: Richter^s syndrome
     Dosage: DOXORUBICIN 18 MG, ETOPOSIDE 90 MG, VCR 0.72 MG) IV AS A 24-H INFUSION ON JANUARY 4, 5, 6 AND 7, 202
     Route: 042
     Dates: start: 20230104, end: 20230107

REACTIONS (1)
  - Agranulocytosis [Recovering/Resolving]

NARRATIVE: CASE EVENT DATE: 20230113
